FAERS Safety Report 21234265 (Version 1)
Quarter: 2022Q3

REPORT INFORMATION
  Report Type: Spontaneous
  Country: JP (occurrence: JP)
  Receive Date: 20220819
  Receipt Date: 20220819
  Transmission Date: 20221027
  Serious: Yes (Other)
  Sender: FDA-Public Use
  Company Number: JP-ALLERGAN-2226596US

PATIENT
  Sex: Female

DRUGS (2)
  1. GATIFLOXACIN SESQUIHYDRATE [Suspect]
     Active Substance: GATIFLOXACIN
     Indication: Product used for unknown indication
     Dosage: UNK
  2. TACROLIMUS [Suspect]
     Active Substance: TACROLIMUS
     Indication: Product used for unknown indication
     Dosage: UNK
     Route: 047

REACTIONS (2)
  - Keratic precipitates [Unknown]
  - Keratitis viral [Unknown]
